FAERS Safety Report 5148687-2 (Version None)
Quarter: 2006Q4

REPORT INFORMATION
  Report Type: 
  Country: None (occurrence: None)
  Receive Date: 20060918
  Receipt Date: 20060413
  Transmission Date: 20070319
  Serious: Yes (Other)
  Sender: FDA-Public Use
  Company Number: US-JNJFOC-20060403486

PATIENT
  Age: 13 Year
  Sex: Male
  Weight: 45.3597 kg

DRUGS (2)
  1. TOPAMAX [Suspect]
     Indication: EPILEPSY
     Dosage: SEE IMAGE
     Route: 048
     Dates: start: 20030101, end: 20050101
  2. TOPAMAX [Suspect]
     Indication: EPILEPSY
     Dosage: SEE IMAGE
     Route: 048
     Dates: start: 20050101, end: 20060408

REACTIONS (6)
  - DIZZINESS [None]
  - DRUG WITHDRAWAL CONVULSIONS [None]
  - FEELING COLD [None]
  - HEADACHE [None]
  - RESTLESSNESS [None]
  - TREMOR [None]
